FAERS Safety Report 9404512 (Version 1)
Quarter: 2013Q3

REPORT INFORMATION
  Report Type: Spontaneous
  Country: US (occurrence: US)
  Receive Date: 20130717
  Receipt Date: 20130717
  Transmission Date: 20140515
  Serious: No
  Sender: FDA-Public Use
  Company Number: US-PFIZER INC-2013205449

PATIENT
  Sex: Female

DRUGS (4)
  1. PREMARIN [Suspect]
     Indication: HORMONE REPLACEMENT THERAPY
     Dosage: UNK
     Dates: start: 20130317, end: 2013
  2. PREMARIN [Suspect]
     Indication: HOT FLUSH
  3. PREMARIN [Suspect]
     Indication: HYPERHIDROSIS
  4. PREMARIN [Suspect]
     Indication: ALOPECIA

REACTIONS (1)
  - Abdominal pain [Recovered/Resolved]
